FAERS Safety Report 13864505 (Version 3)
Quarter: 2017Q3

REPORT INFORMATION
  Report Type: Spontaneous
  Country: US (occurrence: US)
  Receive Date: 20170814
  Receipt Date: 20170913
  Transmission Date: 20171127
  Serious: Yes (Life-Threatening)
  Sender: FDA-Public Use
  Company Number: US-PFIZER INC-2017343555

PATIENT
  Age: 52 Year
  Sex: Male

DRUGS (2)
  1. DEXAMETHASONE. [Suspect]
     Active Substance: DEXAMETHASONE
     Indication: NECK PAIN
     Dosage: 10 MG
     Route: 008
  2. LIDOCAINE HCL [Suspect]
     Active Substance: LIDOCAINE HYDROCHLORIDE
     Indication: NECK PAIN
     Dosage: 2 ML, (PRESERVATIVE FREE)
     Route: 008

REACTIONS (3)
  - Vertigo [Recovered/Resolved]
  - Dysphagia [Recovered/Resolved]
  - Nystagmus [Recovered/Resolved]
